FAERS Safety Report 18176461 (Version 1)
Quarter: 2020Q3

REPORT INFORMATION
  Report Type: Spontaneous
  Country: US (occurrence: US)
  Receive Date: 20200820
  Receipt Date: 20200820
  Transmission Date: 20201103
  Serious: Yes (Death, Other)
  Sender: FDA-Public Use
  Company Number: US-PFIZER INC-2020322137

PATIENT
  Age: 69 Year
  Sex: Female
  Weight: 72.56 kg

DRUGS (14)
  1. METFORMIN [Concomitant]
     Active Substance: METFORMIN HYDROCHLORIDE
     Dosage: UNK
     Route: 065
  2. ELIQUIS [Suspect]
     Active Substance: APIXABAN
     Indication: CEREBROVASCULAR ACCIDENT PROPHYLAXIS
     Dosage: 5 MILLIGRAM, BID
     Route: 048
     Dates: start: 20150311
  3. LYRICA [Suspect]
     Active Substance: PREGABALIN
     Indication: NEUROPATHY PERIPHERAL
     Dosage: 150 MILLIGRAM, BID
     Route: 065
     Dates: start: 2017
  4. GABAPENTIN. [Suspect]
     Active Substance: GABAPENTIN
     Indication: DIABETIC NEUROPATHY
  5. EQUATE PAIN RELIEVER [Suspect]
     Active Substance: ACETAMINOPHEN
     Indication: PAIN
     Dosage: UNK
     Route: 065
  6. CODEINE [Concomitant]
     Active Substance: CODEINE
     Dosage: UNK
     Route: 065
  7. LYRICA [Suspect]
     Active Substance: PREGABALIN
     Indication: DIABETIC NEUROPATHY
  8. SIMVASTATIN. [Concomitant]
     Active Substance: SIMVASTATIN
     Indication: BLOOD CHOLESTEROL INCREASED
     Dosage: 1 TAB, QD (EVENING)
     Route: 065
     Dates: start: 2017
  9. GABAPENTIN. [Suspect]
     Active Substance: GABAPENTIN
     Indication: NEURALGIA
  10. LYRICA [Suspect]
     Active Substance: PREGABALIN
     Indication: NEURALGIA
  11. METOPROLOL. [Concomitant]
     Active Substance: METOPROLOL
     Indication: HYPERTENSION
  12. ELIQUIS [Suspect]
     Active Substance: APIXABAN
     Indication: ATRIAL FIBRILLATION
  13. GABAPENTIN. [Suspect]
     Active Substance: GABAPENTIN
     Indication: NEUROPATHY PERIPHERAL
     Dosage: UNK
     Route: 065
  14. METOPROLOL. [Concomitant]
     Active Substance: METOPROLOL
     Indication: PALPITATIONS
     Dosage: 1 TAB, Q12H
     Route: 048
     Dates: start: 2017

REACTIONS (1)
  - Death [Fatal]

NARRATIVE: CASE EVENT DATE: 202007
